FAERS Safety Report 7307760-0 (Version None)
Quarter: 2011Q1

REPORT INFORMATION
  Report Type: 
  Country: None (occurrence: None)
  Receive Date: 20110223
  Receipt Date: 20110214
  Transmission Date: 20110831
  Serious: Yes (Other)
  Sender: FDA-Public Use
  Company Number: US-JNJFOC-20110204902

PATIENT
  Age: 22 Year
  Sex: Male

DRUGS (2)
  1. REMERON [Concomitant]
     Indication: DEPRESSION
     Route: 048
  2. INVEGA [Suspect]
     Indication: HALLUCINATION
     Route: 048

REACTIONS (2)
  - SWOLLEN TONGUE [None]
  - DYSPNOEA [None]
